FAERS Safety Report 4777959-6 (Version None)
Quarter: 2005Q3

REPORT INFORMATION
  Report Type: 
  Country: None (occurrence: None)
  Receive Date: 20050921
  Receipt Date: 20050907
  Transmission Date: 20060218
  Serious: Yes (Other)
  Sender: FDA-Public Use
  Company Number: DE_050916888

PATIENT
  Age: 58 Year
  Sex: Female
  Weight: 60 kg

DRUGS (1)
  1. CYMBALTA [Suspect]
     Indication: DEPRESSION
     Dosage: 60 MG
     Dates: start: 20050402, end: 20050406

REACTIONS (7)
  - DIZZINESS [None]
  - DRY MOUTH [None]
  - MALAISE [None]
  - PALPITATIONS [None]
  - SLEEP DISORDER [None]
  - SYMPATHICOTONIA [None]
  - VENTRICULAR EXTRASYSTOLES [None]
